FAERS Safety Report 12074731 (Version 1)
Quarter: 2016Q1

REPORT INFORMATION
  Report Type: Spontaneous
  Country: CA (occurrence: CA)
  Receive Date: 20160212
  Receipt Date: 20160212
  Transmission Date: 20160526
  Serious: Yes (Other)
  Sender: FDA-Public Use
  Company Number: PHHY2016CA016809

PATIENT
  Sex: Male

DRUGS (4)
  1. ASPIRIN                            /00346701/ [Concomitant]
     Active Substance: ASCORBIC ACID\ASPIRIN
     Indication: PRODUCT USED FOR UNKNOWN INDICATION
     Route: 065
  2. VALSARTAN SANDOZ [Suspect]
     Active Substance: VALSARTAN
     Indication: HYPERTENSION
     Dosage: 81 MG, QD
     Route: 048
     Dates: start: 201409
  3. SYMBICORT [Concomitant]
     Active Substance: BUDESONIDE\FORMOTEROL FUMARATE DIHYDRATE
     Indication: PRODUCT USED FOR UNKNOWN INDICATION
     Route: 065
  4. SPIRIVA [Concomitant]
     Active Substance: TIOTROPIUM BROMIDE MONOHYDRATE
     Indication: PRODUCT USED FOR UNKNOWN INDICATION
     Route: 065

REACTIONS (9)
  - Injury [Unknown]
  - Musculoskeletal pain [Unknown]
  - Dyspnoea [Unknown]
  - Sleep apnoea syndrome [Unknown]
  - Depression [Unknown]
  - Weight increased [Unknown]
  - Wheezing [Unknown]
  - Weight decreased [Unknown]
  - Bone pain [Unknown]

NARRATIVE: CASE EVENT DATE: 2014
